FAERS Safety Report 7364278 (Version 26)
Quarter: 2013Q3

REPORT INFORMATION
  Report Type: Report from Study
  Country: US (occurrence: US)
  Receive Date: 20100423
  Receipt Date: 20130701
  Transmission Date: 20140515
  Serious: Yes (Life-Threatening, Hospitalization)
  Sender: FDA-Public Use
  Company Number: US-JNJFOC-20100404265

PATIENT
  Age: 15 Year
  Sex: Male
  Weight: 47.8 kg

DRUGS (33)
  1. INFLIXIMAB [Suspect]
     Indication: CROHN^S DISEASE
     Route: 042
     Dates: start: 20090429, end: 20090429
  2. INFLIXIMAB [Suspect]
     Indication: CROHN^S DISEASE
     Dosage: PRIOR TO REGISTRY
     Route: 042
     Dates: start: 20051103
  3. METHOTREXATE [Suspect]
     Indication: CROHN^S DISEASE
  4. HUMIRA [Suspect]
     Indication: CROHN^S DISEASE
     Dates: start: 20090512
  5. HUMIRA [Suspect]
     Indication: CROHN^S DISEASE
     Dates: start: 20091116
  6. HUMIRA [Suspect]
     Indication: CROHN^S DISEASE
     Dates: start: 20100331, end: 20100331
  7. PREDNISONE [Suspect]
     Indication: CROHN^S DISEASE
  8. BENADRYL [Concomitant]
  9. CALCIUM CARBONATE [Concomitant]
  10. IRON [Concomitant]
  11. FOLIC ACID [Concomitant]
  12. CHOLECALCIFEROL [Concomitant]
  13. PEPTAMEN [Concomitant]
  14. RIFAXIMIN [Concomitant]
  15. IMODIUM [Concomitant]
  16. MORPHINE [Concomitant]
  17. COTRIMOXAZOLE [Concomitant]
  18. MIRALAX [Concomitant]
  19. ARA-C [Concomitant]
  20. SCOPOLAMINE [Concomitant]
  21. ZANTAC [Concomitant]
  22. VANCOMYCIN [Concomitant]
  23. ZOSYN [Concomitant]
  24. FLUCONAZOLE [Concomitant]
  25. CHLORHEXIDINE GLUCONATE [Concomitant]
  26. ZOFRAN [Concomitant]
  27. NALBUPHINE [Concomitant]
  28. ATIVAN [Concomitant]
  29. OMEPRAZOLE [Concomitant]
  30. OXYCODONE [Concomitant]
  31. ALUMINUM HYDROXIDE [Concomitant]
  32. ANTIBIOTICS [Concomitant]
     Indication: INFLAMMATORY BOWEL DISEASE
  33. AUGMENTIN [Concomitant]

REACTIONS (5)
  - Myeloid leukaemia [Recovered/Resolved]
  - Acute monocytic leukaemia [Recovered/Resolved with Sequelae]
  - Transfusion reaction [Recovered/Resolved]
  - Multi-organ failure [Recovered/Resolved]
  - Septic shock [Recovered/Resolved]
